FAERS Safety Report 17572464 (Version 1)
Quarter: 2020Q1

REPORT INFORMATION
  Report Type: Spontaneous
  Country: US (occurrence: US)
  Receive Date: 20200323
  Receipt Date: 20200323
  Transmission Date: 20200409
  Serious: Yes (Death)
  Sender: FDA-Public Use
  Company Number: None

PATIENT
  Age: 87 Year
  Sex: Male

DRUGS (13)
  1. OXYCODONE [Concomitant]
     Active Substance: OXYCODONE
  2. TRAMADOL. [Concomitant]
     Active Substance: TRAMADOL
  3. DOXYCYCL HYC [Concomitant]
  4. CHLORHEX GLU [Concomitant]
  5. PREDNISONE. [Concomitant]
     Active Substance: PREDNISONE
  6. BUDES/FORMOT [Concomitant]
  7. DOFETILIDE. [Suspect]
     Active Substance: DOFETILIDE
     Indication: ATRIAL FIBRILLATION
     Route: 048
     Dates: start: 20190808, end: 20200312
  8. AMOX/K CLAV [Concomitant]
     Active Substance: AMOXICILLIN\CLAVULANATE POTASSIUM
  9. OFLOXACIN. [Concomitant]
     Active Substance: OFLOXACIN
  10. AMOXICILLIN. [Concomitant]
     Active Substance: AMOXICILLIN
  11. CIPRO [Concomitant]
     Active Substance: CIPROFLOXACIN HYDROCHLORIDE
  12. PREDNISOLONE. [Concomitant]
     Active Substance: PREDNISOLONE
  13. METOPROL SUC [Concomitant]

REACTIONS (1)
  - Death [None]

NARRATIVE: CASE EVENT DATE: 20200312
